FAERS Safety Report 18357358 (Version 7)
Quarter: 2021Q2

REPORT INFORMATION
  Report Type: Spontaneous
  Country: JP (occurrence: JP)
  Receive Date: 20201007
  Receipt Date: 20210519
  Transmission Date: 20210717
  Serious: Yes (Hospitalization, Other)
  Sender: FDA-Public Use
  Company Number: JP-CELGENEUS-JPN-20201000387

PATIENT
  Age: 72 Year
  Sex: Male
  Weight: 75.2 kg

DRUGS (12)
  1. VELCADE [Concomitant]
     Active Substance: BORTEZOMIB
     Dosage: UNKNOWN
     Route: 065
     Dates: start: 201912
  2. VELCADE [Concomitant]
     Active Substance: BORTEZOMIB
     Indication: PLASMA CELL MYELOMA
     Dosage: UNKNOWN
     Route: 065
     Dates: start: 2016
  3. VELCADE [Concomitant]
     Active Substance: BORTEZOMIB
     Dosage: UNKNOWN
     Route: 065
  4. LENADEX [Suspect]
     Active Substance: DEXAMETHASONE ACETATE
     Dosage: UNKNOWN
     Route: 048
     Dates: start: 2018
  5. LENADEX [Suspect]
     Active Substance: DEXAMETHASONE ACETATE
     Dosage: UNKNOWN
     Route: 048
  6. LENADEX [Suspect]
     Active Substance: DEXAMETHASONE ACETATE
     Dosage: UNKNOWN
     Route: 048
     Dates: start: 201912
  7. REVLIMID [Suspect]
     Active Substance: LENALIDOMIDE
     Indication: PLASMA CELL MYELOMA
     Dosage: UNKNOWN
     Route: 048
     Dates: start: 2018
  8. LENADEX [Suspect]
     Active Substance: DEXAMETHASONE ACETATE
     Indication: PLASMA CELL MYELOMA
     Dosage: UNKNOWN
     Route: 048
     Dates: start: 2016
  9. LENADEX [Suspect]
     Active Substance: DEXAMETHASONE ACETATE
     Route: 048
     Dates: start: 20200201, end: 20200304
  10. POMALYST [Suspect]
     Active Substance: POMALIDOMIDE
     Indication: PLASMA CELL MYELOMA
     Dosage: UNKNOWN
     Route: 048
     Dates: start: 201912
  11. POMALYST [Suspect]
     Active Substance: POMALIDOMIDE
     Dosage: 4 MILLIGRAM
     Route: 048
     Dates: start: 20200201, end: 20200302
  12. VELCADE [Concomitant]
     Active Substance: BORTEZOMIB
     Dosage: 1.8 MILLIGRAM
     Route: 058
     Dates: start: 20200211, end: 20200302

REACTIONS (3)
  - Orthostatic hypotension [Unknown]
  - COVID-19 pneumonia [Recovered/Resolved]
  - Pneumonia [Unknown]

NARRATIVE: CASE EVENT DATE: 20200310
